FAERS Safety Report 9250995 (Version 1)
Quarter: 2013Q1

REPORT INFORMATION
  Report Type: Spontaneous
  Country: US (occurrence: None)
  Receive Date: 20130305
  Receipt Date: 20130305
  Transmission Date: 20140127
  Serious: Yes (Other)
  Sender: FDA-Public Use
  Company Number: 163-21880-12083461

PATIENT
  Age: 82 Year
  Sex: Female
  Weight: 61.24 kg

DRUGS (11)
  1. REVLIMID [Suspect]
     Indication: PLASMA CELL MYELOMA
     Dosage: 21 IN 21 D
     Route: 048
     Dates: start: 20111206, end: 20120810
  2. COUMADIN (WARFARIN SODIUM) [Concomitant]
  3. PEPCID (FAMOTIDINE) [Concomitant]
  4. DEXAMETHASONE (DEXAMETHASONE) [Concomitant]
  5. GABAPENTIN (GABAPENTIN) [Concomitant]
  6. GLIPIZIDE (GLIPIZIDE) [Concomitant]
  7. ARICEPT (DONEPEZIL HYDROCHLORIDE) [Concomitant]
  8. ZETIA (EZETIMIBE) [Concomitant]
  9. LYRICA (PREGABALIN) [Concomitant]
  10. NAMENDA (MEMANTINE HYDROCHLORIDE) [Concomitant]
  11. TRAMADOLOL HCL (TRAMADOL HYDROCHLORIDE) [Concomitant]

REACTIONS (1)
  - Deep vein thrombosis [None]
